FAERS Safety Report 14754542 (Version 1)
Quarter: 2018Q2

REPORT INFORMATION
  Report Type: Spontaneous
  Country: US (occurrence: US)
  Receive Date: 20180413
  Receipt Date: 20180413
  Transmission Date: 20180711
  Serious: Yes (Hospitalization)
  Sender: FDA-Public Use
  Company Number: US-ASTRAZENECA-2007UW18887

PATIENT
  Age: 60 Year
  Sex: Male

DRUGS (5)
  1. SEROQUEL [Suspect]
     Active Substance: QUETIAPINE FUMARATE
     Indication: BIPOLAR DISORDER
     Dosage: 400.0MG UNKNOWN
     Route: 048
     Dates: start: 2001
  2. KOMBIGLYZE XR [Suspect]
     Active Substance: METFORMIN HYDROCHLORIDE\SAXAGLIPTIN HYDROCHLORIDE
     Route: 048
     Dates: start: 20120202, end: 20160912
  3. SEROQUEL [Suspect]
     Active Substance: QUETIAPINE FUMARATE
     Indication: DEPRESSION
     Dosage: 400.0MG UNKNOWN
     Route: 048
     Dates: start: 2001
  4. ONGLYZA [Suspect]
     Active Substance: SAXAGLIPTIN HYDROCHLORIDE
     Route: 048
     Dates: start: 20120202, end: 20160912
  5. ABILIFY [Concomitant]
     Active Substance: ARIPIPRAZOLE

REACTIONS (2)
  - Diabetes mellitus [Unknown]
  - Cardiac failure congestive [Unknown]

NARRATIVE: CASE EVENT DATE: 20150601
